FAERS Safety Report 7161951-0 (Version None)
Quarter: 2010Q4

REPORT INFORMATION
  Report Type: 
  Country: None (occurrence: None)
  Receive Date: 20101215
  Receipt Date: 20100726
  Transmission Date: 20110411
  Serious: Yes (Other)
  Sender: FDA-Public Use
  Company Number: NL-PFIZER INC-2010086852

PATIENT
  Sex: Female

DRUGS (3)
  1. LYRICA [Suspect]
     Indication: NEURALGIA
     Dosage: UNK
     Dates: start: 20060101, end: 20100601
  2. LYRICA [Suspect]
     Dosage: UNK
     Dates: start: 20100713
  3. PARACETAMOL [Concomitant]
     Dosage: UNK

REACTIONS (2)
  - OPEN WOUND [None]
  - PAIN [None]
